FAERS Safety Report 8906010 (Version 1)
Quarter: 2012Q4

REPORT INFORMATION
  Report Type: 
  Country: US (occurrence: US)
  Receive Date: 20121111
  Receipt Date: 20121111
  Transmission Date: 20130627
  Serious: Yes (Hospitalization)
  Sender: FDA-Public Use
  Company Number: US-MERCK-1211USA004190

PATIENT
  Age: 47 Year
  Sex: Male

DRUGS (2)
  1. NOXAFIL [Suspect]
     Indication: FUNGAL INFECTION
     Dosage: 5 ml, UNK
     Route: 048
     Dates: start: 20121031
  2. AMPHOTERICIN B [Concomitant]

REACTIONS (1)
  - Blood glucose increased [Not Recovered/Not Resolved]
